FAERS Safety Report 20540830 (Version 1)
Quarter: 2022Q1

REPORT INFORMATION
  Report Type: Spontaneous
  Country: CA (occurrence: CA)
  Receive Date: 20220302
  Receipt Date: 20220302
  Transmission Date: 20220423
  Serious: Yes (Hospitalization, Other)
  Sender: FDA-Public Use
  Company Number: CA-JNJFOC-20211053535

PATIENT
  Age: 83 Year
  Sex: Female

DRUGS (9)
  1. REMICADE [Suspect]
     Active Substance: INFLIXIMAB
     Indication: Colitis ulcerative
     Route: 042
  2. ASACOL [Concomitant]
     Active Substance: MESALAMINE
  3. BISOPROLOL [Concomitant]
     Active Substance: BISOPROLOL
     Indication: Hypertension
     Route: 048
  4. GABAPENTIN [Concomitant]
     Active Substance: GABAPENTIN
     Indication: Pain
     Route: 048
  5. INSULIN GLARGINE [Concomitant]
     Active Substance: INSULIN GLARGINE
     Indication: Diabetes mellitus
     Route: 058
  6. PREDNISONE [Concomitant]
     Active Substance: PREDNISONE
     Indication: Colitis ulcerative
     Route: 048
  7. TELMISARTAN [Concomitant]
     Active Substance: TELMISARTAN
     Indication: Hypertension
     Route: 048
  8. TOLOXIN [DIGOXIN] [Concomitant]
     Indication: Atrial fibrillation
     Route: 048
  9. WARFARIN [Concomitant]
     Active Substance: WARFARIN
     Indication: Atrial fibrillation
     Route: 048

REACTIONS (12)
  - Kidney infection [Unknown]
  - Systemic infection [Unknown]
  - Chromaturia [Unknown]
  - Illness [Unknown]
  - Malaise [Unknown]
  - Hypertension [Unknown]
  - Disease recurrence [Unknown]
  - Condition aggravated [Unknown]
  - Cystitis [Unknown]
  - Urinary tract infection [Unknown]
  - Blood pressure decreased [Unknown]
  - Off label use [Unknown]
